FAERS Safety Report 9285734 (Version 1)
Quarter: 2013Q2

REPORT INFORMATION
  Report Type: Spontaneous
  Country: NG (occurrence: NG)
  Receive Date: 20130513
  Receipt Date: 20130513
  Transmission Date: 20140414
  Serious: Yes (Death)
  Sender: FDA-Public Use
  Company Number: NG-PFIZER INC-2013144980

PATIENT
  Sex: Male

DRUGS (1)
  1. VFEND [Suspect]
     Indication: FUNGAL INFECTION
     Dosage: 200 MG, EVERY 12 HRS
     Route: 048
     Dates: start: 201304

REACTIONS (2)
  - Acquired immunodeficiency syndrome [Fatal]
  - Embolism [Fatal]
